FAERS Safety Report 6186498-X (Version None)
Quarter: 2009Q2

REPORT INFORMATION
  Report Type: 
  Country: None (occurrence: None)
  Receive Date: 20090512
  Receipt Date: 20090507
  Transmission Date: 20091009
  Serious: No
  Sender: FDA-Public Use
  Company Number: AU-JNJFOC-20090501913

PATIENT
  Age: 50 Year
  Sex: Male

DRUGS (1)
  1. DURAGESIC-100 [Suspect]
     Indication: DRUG USE FOR UNKNOWN INDICATION
     Route: 062

REACTIONS (5)
  - DRUG DOSE OMISSION [None]
  - HEAD DISCOMFORT [None]
  - PAIN [None]
  - SOMNOLENCE [None]
  - VOMITING [None]
